FAERS Safety Report 24601562 (Version 1)
Quarter: 2024Q4

REPORT INFORMATION
  Report Type: Spontaneous
  Country: BR (occurrence: BR)
  Receive Date: 20241111
  Receipt Date: 20241111
  Transmission Date: 20250115
  Serious: Yes (Other)
  Sender: Y-MABS THERAPEUTICS
  Company Number: BR-Y-MABS THERAPEUTICS, INC.-EAP2024-BR-001809

PATIENT

DRUGS (7)
  1. DANYELZA [Suspect]
     Active Substance: NAXITAMAB-GQGK
     Indication: Neuroblastoma recurrent
     Dosage: CYCLE 1, DOSE 1 (HITS DAY 2)
     Route: 042
     Dates: start: 20230725, end: 20230725
  2. DANYELZA [Suspect]
     Active Substance: NAXITAMAB-GQGK
     Dosage: CYCLE 1, DOSE 2 (HITS DAY 4)
     Route: 042
     Dates: start: 20240727, end: 20240727
  3. DANYELZA [Suspect]
     Active Substance: NAXITAMAB-GQGK
     Dosage: CYCLE 1, DOSE 3 (HITS DAY 8)
     Route: 042
     Dates: start: 20240731, end: 20240731
  4. DANYELZA [Suspect]
     Active Substance: NAXITAMAB-GQGK
     Dosage: CYCLE 1, DOSE 4 (HITS DAY 10)
     Route: 042
     Dates: start: 20240802, end: 20240802
  5. GRANULOCYTE-MACROPHAGE COLONY-STIMULATING FACTOR [Concomitant]
     Active Substance: GRANULOCYTE-MACROPHAGE COLONY-STIMULATING FACTOR
     Indication: Neuroblastoma recurrent
     Dosage: 250 MICROGRAM/SQ. METER, QD
     Dates: start: 20230729, end: 20230802
  6. TEMOZOLOMIDE [Concomitant]
     Active Substance: TEMOZOLOMIDE
     Indication: Neuroblastoma recurrent
     Dosage: 150 MILLIGRAM/SQ. METER, QD
     Dates: start: 20230724, end: 20230728
  7. IRINOTECAN [Concomitant]
     Active Substance: IRINOTECAN
     Indication: Neuroblastoma recurrent
     Dosage: 50 MILLIGRAM/SQ. METER, QD
     Dates: start: 20230724, end: 20230728

REACTIONS (1)
  - Myelosuppression [Recovered/Resolved]
